FAERS Safety Report 21836900 (Version 1)
Quarter: 2023Q1

REPORT INFORMATION
  Report Type: Spontaneous
  Country: CA (occurrence: CA)
  Receive Date: 20230109
  Receipt Date: 20230109
  Transmission Date: 20230417
  Serious: Yes (Hospitalization, Other)
  Sender: FDA-Public Use
  Company Number: CA-002147023-NVSC2023CA001314

PATIENT
  Age: 61 Year
  Sex: Male

DRUGS (11)
  1. MYCOPHENOLATE MOFETIL [Suspect]
     Active Substance: MYCOPHENOLATE MOFETIL
     Indication: Product used for unknown indication
     Dosage: 3 G, QD (1 EVERY 1 DAYS)
     Route: 048
  2. MYCOPHENOLATE MOFETIL [Suspect]
     Active Substance: MYCOPHENOLATE MOFETIL
     Dosage: 500 MG, BID (2 EVERY 1 DAYS)
     Route: 048
  3. MYCOPHENOLATE MOFETIL [Suspect]
     Active Substance: MYCOPHENOLATE MOFETIL
     Dosage: 500 MG, QD (1 EVERY 1 DAYS)
     Route: 048
  4. ACTEMRA [Suspect]
     Active Substance: TOCILIZUMAB
     Indication: Birdshot chorioretinopathy
     Dosage: 162 MG, QW (1 EVERY 1 WEEKS)
     Route: 058
  5. AMLODIPINE BESYLATE [Concomitant]
     Active Substance: AMLODIPINE BESYLATE
     Indication: Product used for unknown indication
     Dosage: UNK
     Route: 065
  6. BRIMONIDINE TARTRATE [Concomitant]
     Active Substance: BRIMONIDINE TARTRATE
     Indication: Product used for unknown indication
     Dosage: UNK
     Route: 065
  7. LOTEMAX [Concomitant]
     Active Substance: LOTEPREDNOL ETABONATE
     Indication: Product used for unknown indication
     Dosage: UNK (SUSPENSION OPHTHALMIC)
     Route: 065
  8. METFORMIN HYDROCHLORIDE [Concomitant]
     Active Substance: METFORMIN HYDROCHLORIDE
     Indication: Product used for unknown indication
     Dosage: UNK
     Route: 065
  9. OLMESARTAN [Concomitant]
     Active Substance: OLMESARTAN
     Indication: Product used for unknown indication
     Dosage: UNK
     Route: 065
  10. PREDNISONE [Concomitant]
     Active Substance: PREDNISONE
     Indication: Product used for unknown indication
     Dosage: UNK
     Route: 065
  11. SYNTHROID [Concomitant]
     Active Substance: LEVOTHYROXINE SODIUM
     Indication: Product used for unknown indication
     Dosage: UNK
     Route: 065

REACTIONS (17)
  - Peripheral vascular disorder [Unknown]
  - Bursitis [Unknown]
  - Crush injury [Unknown]
  - Deep vein thrombosis [Unknown]
  - Fall [Unknown]
  - Haematoma [Unknown]
  - Limb injury [Unknown]
  - Pelvic fracture [Unknown]
  - Pulmonary embolism [Unknown]
  - Renal cyst [Unknown]
  - Rib fracture [Unknown]
  - Tooth disorder [Unknown]
  - Accident at work [Unknown]
  - Benign prostatic hyperplasia [Unknown]
  - Blood pressure systolic increased [Unknown]
  - Pelvic fracture [Unknown]
  - Off label use [Unknown]
